FAERS Safety Report 22037921 (Version 1)
Quarter: 2023Q1

REPORT INFORMATION
  Report Type: Spontaneous
  Country: CA (occurrence: None)
  Receive Date: 20230227
  Receipt Date: 20230227
  Transmission Date: 20230418
  Serious: Yes (Other)
  Sender: FDA-Public Use
  Company Number: 2023A047498

PATIENT
  Age: 35 Year
  Sex: Female

DRUGS (13)
  1. BUPIVACAINE HYDROCHLORIDE [Suspect]
     Active Substance: BUPIVACAINE HYDROCHLORIDE
     Indication: Product used for unknown indication
     Dosage: 1.8 ML
  2. OMEPRAZOLE [Suspect]
     Active Substance: OMEPRAZOLE
     Indication: Product used for unknown indication
     Dosage: 40 MG, QD
     Route: 048
  3. LEVOTHYROXINE SODIUM [Suspect]
     Active Substance: LEVOTHYROXINE SODIUM
     Indication: Product used for unknown indication
     Dosage: 125 MCG, QD
  4. AZITHROMYCIN [Suspect]
     Active Substance: AZITHROMYCIN
     Indication: Product used for unknown indication
     Dosage: UNK
  5. FENTANYL [Suspect]
     Active Substance: FENTANYL
     Indication: Product used for unknown indication
     Dosage: 10 MCG10.0UG UNKNOWN
  6. FLUTICASONE [Suspect]
     Active Substance: FLUTICASONE
     Indication: Product used for unknown indication
     Dosage: UNK
  7. MORPHINE SULFATE [Suspect]
     Active Substance: MORPHINE SULFATE
     Indication: Product used for unknown indication
     Dosage: 100 MCG100.0UG UNKNOWN
  8. ONDANSETRON [Suspect]
     Active Substance: ONDANSETRON
     Indication: Product used for unknown indication
     Dosage: 4 MG4.0MG UNKNOWN
     Route: 042
  9. OXYTOCIN [Suspect]
     Active Substance: OXYTOCIN
     Indication: Uterine contractions during pregnancy
     Dosage: UNK
     Route: 042
  10. PHENYLEPHRINE HCL [Suspect]
     Active Substance: PHENYLEPHRINE HYDROCHLORIDE
     Indication: Product used for unknown indication
     Dosage: 650 MCG650.0UG UNKNOWN
     Route: 042
  11. ALBUTEROL [Suspect]
     Active Substance: ALBUTEROL
     Indication: Product used for unknown indication
     Dosage: UNK
  12. SALMETEROL XINAFOATE [Suspect]
     Active Substance: SALMETEROL XINAFOATE
     Indication: Product used for unknown indication
     Dosage: UNK
  13. TOBRAMYCIN [Suspect]
     Active Substance: TOBRAMYCIN
     Indication: Product used for unknown indication
     Dosage: UNK

REACTIONS (3)
  - Maternal exposure during pregnancy [Unknown]
  - Ventilation perfusion mismatch [Unknown]
  - Hypoxia [Unknown]
